FAERS Safety Report 8097164-8 (Version None)
Quarter: 2012Q1

REPORT INFORMATION
  Report Type: 
  Country: None (occurrence: None)
  Receive Date: 20120128
  Receipt Date: 20110705
  Transmission Date: 20120608
  Serious: Yes (Other)
  Sender: FDA-Public Use
  Company Number: US-ABBOTT-11P-163-0836887-00

PATIENT
  Sex: Female
  Weight: 72.64 kg

DRUGS (10)
  1. LISINOPRIL [Concomitant]
     Indication: HYPERTENSION
  2. UNKNOWN NASAL SPRAY [Concomitant]
     Indication: HYPERSENSITIVITY
     Route: 045
  3. HUMIRA [Suspect]
     Indication: CROHN'S DISEASE
     Dates: start: 20100713, end: 20110428
  4. EXTRA STRENGTH TYLENOL [Concomitant]
     Indication: HEADACHE
  5. BENZONATATE [Concomitant]
     Indication: COUGH
  6. CITALOPRAM [Concomitant]
     Indication: MOOD SWINGS
  7. PROAIR HFA [Concomitant]
     Indication: DYSPNOEA
     Route: 055
  8. POTASSIUM CHLORIDE [Concomitant]
     Indication: BLOOD POTASSIUM DECREASED
  9. SINGULAIR [Concomitant]
     Indication: HYPERSENSITIVITY
  10. UNKNOWN DIARRHEA MEDICATION [Concomitant]
     Indication: DIARRHOEA

REACTIONS (13)
  - INCREASED TENDENCY TO BRUISE [None]
  - BONE PAIN [None]
  - INFECTION [None]
  - NIGHT SWEATS [None]
  - FATIGUE [None]
  - HAEMORRHAGIC DIATHESIS [None]
  - LYMPHADENOPATHY [None]
  - LEUKAEMIA [None]
  - HEADACHE [None]
  - WHITE BLOOD CELL COUNT ABNORMAL [None]
  - ARTHRALGIA [None]
  - ASTHENIA [None]
  - PYREXIA [None]
